FAERS Safety Report 12647393 (Version 1)
Quarter: 2016Q3

REPORT INFORMATION
  Report Type: Spontaneous
  Country: US (occurrence: None)
  Receive Date: 20160811
  Receipt Date: 20160811
  Transmission Date: 20161109
  Serious: No
  Sender: FDA-Public Use
  Company Number: None

PATIENT
  Age: 78 Year
  Sex: Male
  Weight: 113.4 kg

DRUGS (10)
  1. FUROSEMIDE. [Concomitant]
     Active Substance: FUROSEMIDE
  2. ISORBIDE MONONITRATE [Concomitant]
  3. POTASSIUM CHLORIDE K-DUR [Concomitant]
  4. METOPROLOL. [Concomitant]
     Active Substance: METOPROLOL
  5. OMEGA FISH OIL [Concomitant]
     Active Substance: FISH OIL\OMEGA-3 FATTY ACIDS
  6. CIPROFLOXACIN 500MG TAB TEV GENERIC FOR CIPRO 500MG TAB [Suspect]
     Active Substance: CIPROFLOXACIN
     Indication: PROSTATITIS
     Dosage: CIPROFLOXACIN 500 MG TABLET 28 PILLS TWICE DAILY TAKEN BY MOUTH
     Route: 048
     Dates: start: 20160318, end: 20160701
  7. VALSARTAN. [Concomitant]
     Active Substance: VALSARTAN
  8. ATORVASTATIN [Concomitant]
     Active Substance: ATORVASTATIN
  9. VITAMIN C [Concomitant]
     Active Substance: ASCORBIC ACID
  10. MULTIVITAMIN [Concomitant]
     Active Substance: VITAMINS

REACTIONS (2)
  - Paraesthesia [None]
  - Muscular weakness [None]

NARRATIVE: CASE EVENT DATE: 20160601
